FAERS Safety Report 14155645 (Version 5)
Quarter: 2021Q3

REPORT INFORMATION
  Report Type: Spontaneous
  Country: JP (occurrence: JP)
  Receive Date: 20171103
  Receipt Date: 20210727
  Transmission Date: 20211014
  Serious: Yes (Hospitalization, Other)
  Sender: FDA-Public Use
  Company Number: JP-UNITED THERAPEUTICS-UNT-2017-015342

PATIENT
  Age: 53 Year
  Sex: Female
  Weight: 37.7 kg

DRUGS (37)
  1. REVATIO [Concomitant]
     Active Substance: SILDENAFIL CITRATE
     Indication: PULMONARY ARTERIAL HYPERTENSION
     Dosage: UNK
     Route: 048
     Dates: start: 201412
  2. CARELOAD LA [Concomitant]
     Active Substance: BERAPROST SODIUM
     Indication: ATRIAL SEPTAL DEFECT REPAIR
  3. MUCODYNE [Concomitant]
     Active Substance: CARBOCYSTEINE
     Indication: PRODUCT USED FOR UNKNOWN INDICATION
     Dosage: UNK
     Route: 048
     Dates: end: 20160405
  4. ELIQUIS [Concomitant]
     Active Substance: APIXABAN
     Indication: PRODUCT USED FOR UNKNOWN INDICATION
     Dosage: UNK
     Route: 048
     Dates: start: 20170215
  5. L?CARBOCISTEINE [Concomitant]
     Active Substance: CARBOCYSTEINE
     Indication: PRODUCT USED FOR UNKNOWN INDICATION
     Dosage: UNK
     Route: 048
     Dates: start: 20160203
  6. UPTRAVI [Concomitant]
     Active Substance: SELEXIPAG
     Indication: PULMONARY HYPERTENSION
     Dosage: UNK
     Route: 048
     Dates: start: 20170607
  7. REMODULIN [Suspect]
     Active Substance: TREPROSTINIL
     Dosage: 0.0495 ?G/KG, CONTINUING
     Route: 058
     Dates: start: 2016
  8. ONON [Concomitant]
     Active Substance: PRANLUKAST
     Indication: PRODUCT USED FOR UNKNOWN INDICATION
     Dosage: UNK
     Route: 048
     Dates: end: 20160329
  9. FLUTIDE [Concomitant]
     Indication: PRODUCT USED FOR UNKNOWN INDICATION
     Dosage: UNK
     Route: 065
     Dates: end: 20160218
  10. SPIRIVA [Concomitant]
     Active Substance: TIOTROPIUM BROMIDE MONOHYDRATE
     Indication: PRODUCT USED FOR UNKNOWN INDICATION
     Dosage: UNK
     Route: 065
     Dates: start: 20160218, end: 20170315
  11. SAMSCA [Concomitant]
     Active Substance: TOLVAPTAN
     Indication: PULMONARY HYPERTENSION
     Dosage: UNK
     Route: 048
     Dates: start: 20160311
  12. REMODULIN [Suspect]
     Active Substance: TREPROSTINIL
     Dosage: 0.023 ?G/KG, CONTINUING
     Route: 058
     Dates: start: 201602
  13. REMODULIN [Suspect]
     Active Substance: TREPROSTINIL
     Dosage: UNK (DOSING RATE WAS 24 MCL/H) , CONTINUING
     Route: 058
     Dates: start: 2017
  14. REMODULIN [Suspect]
     Active Substance: TREPROSTINIL
     Dosage: UNK (DOSING RATE WAS18 MCL/H), CONTINUING
     Route: 058
     Dates: start: 2017
  15. REMODULIN [Suspect]
     Active Substance: TREPROSTINIL
     Dosage: UNK (DOSING RATE WAS 17 MCL/H), CONTINUING
     Route: 058
     Dates: start: 2017
  16. TRACLEER [Concomitant]
     Active Substance: BOSENTAN
     Indication: PULMONARY HYPERTENSION
     Dosage: UNK
     Route: 048
     Dates: start: 201106, end: 20160226
  17. MUCOSOLVAN [Concomitant]
     Active Substance: AMBROXOL HYDROCHLORIDE
     Indication: PRODUCT USED FOR UNKNOWN INDICATION
     Dosage: UNK
     Route: 048
  18. WARFARIN [Concomitant]
     Active Substance: WARFARIN
     Indication: PRODUCT USED FOR UNKNOWN INDICATION
     Dosage: UNK
     Route: 048
     Dates: start: 20160209, end: 20170215
  19. SPIRIVA [Concomitant]
     Active Substance: TIOTROPIUM BROMIDE MONOHYDRATE
     Dosage: UNK
     Route: 065
     Dates: start: 20170531
  20. SAMSCA [Concomitant]
     Active Substance: TOLVAPTAN
     Indication: ATRIAL SEPTAL DEFECT REPAIR
  21. REMODULIN [Suspect]
     Active Substance: TREPROSTINIL
     Dosage: 0.01864 ?G/KG, CONTINUING
     Route: 058
     Dates: start: 2016
  22. REMODULIN [Suspect]
     Active Substance: TREPROSTINIL
     Dosage: 0.046 ?G/KG, CONTINUING
     Route: 058
     Dates: start: 2016
  23. INDERAL [Concomitant]
     Active Substance: PROPRANOLOL HYDROCHLORIDE
     Indication: PRODUCT USED FOR UNKNOWN INDICATION
     Dosage: UNK
     Route: 065
     Dates: start: 20160205, end: 20160211
  24. MACITENTAN [Concomitant]
     Active Substance: MACITENTAN
     Indication: PULMONARY HYPERTENSION
     Dosage: UNK
     Route: 048
     Dates: start: 20160227
  25. MACITENTAN [Concomitant]
     Active Substance: MACITENTAN
     Indication: ATRIAL SEPTAL DEFECT REPAIR
  26. UPTRAVI [Concomitant]
     Active Substance: SELEXIPAG
     Indication: ATRIAL SEPTAL DEFECT REPAIR
  27. REMODULIN [Suspect]
     Active Substance: TREPROSTINIL
     Indication: PULMONARY ARTERIAL HYPERTENSION
     Dosage: UNK, CONTINUING
     Route: 058
     Dates: start: 20160128
  28. REMODULIN [Suspect]
     Active Substance: TREPROSTINIL
     Dosage: 0.0208  ?G/KG, CONTINUING
     Route: 058
     Dates: start: 201602
  29. REMODULIN [Suspect]
     Active Substance: TREPROSTINIL
     Dosage: UNK (DOSING RATE WAS 19 MCL/H), CONTINUING
     Route: 058
     Dates: start: 2017
  30. CARELOAD LA [Concomitant]
     Active Substance: BERAPROST SODIUM
     Indication: PULMONARY HYPERTENSION
     Dosage: UNK
     Route: 048
     Dates: start: 201311, end: 20160202
  31. REMODULIN [Suspect]
     Active Substance: TREPROSTINIL
     Dosage: 0.030 ?G/KG, CONTINUING
     Route: 058
     Dates: start: 2017
  32. REMODULIN [Suspect]
     Active Substance: TREPROSTINIL
     Dosage: 0.0283 ?G/KG, CONTINUING
     Route: 058
  33. ADCIRCA [Concomitant]
     Active Substance: TADALAFIL
     Indication: PULMONARY ARTERIAL HYPERTENSION
     Dosage: UNK
     Route: 048
     Dates: start: 201107
  34. TRACLEER [Concomitant]
     Active Substance: BOSENTAN
     Indication: ATRIAL SEPTAL DEFECT REPAIR
  35. FUROSEMIDE. [Concomitant]
     Active Substance: FUROSEMIDE
     Indication: PULMONARY HYPERTENSION
     Dosage: UNK
     Route: 048
     Dates: start: 20160209
  36. FUROSEMIDE. [Concomitant]
     Active Substance: FUROSEMIDE
     Indication: ATRIAL SEPTAL DEFECT REPAIR
  37. MAINTATE [Concomitant]
     Active Substance: BISOPROLOL FUMARATE
     Indication: PRODUCT USED FOR UNKNOWN INDICATION
     Dosage: UNK
     Route: 048
     Dates: start: 20160210

REACTIONS (13)
  - Injection site pruritus [Recovering/Resolving]
  - Nausea [Recovering/Resolving]
  - Injection site erythema [Recovering/Resolving]
  - Injection site haemorrhage [Recovered/Resolved]
  - Facial paralysis [Recovering/Resolving]
  - Catheter site extravasation [Recovered/Resolved]
  - Injection site haemorrhage [Unknown]
  - Pulmonary arterial pressure increased [Unknown]
  - Headache [Recovering/Resolving]
  - Injection site pain [Not Recovered/Not Resolved]
  - Pneumonia [Recovering/Resolving]
  - Diarrhoea [Recovering/Resolving]
  - Groin pain [Recovering/Resolving]

NARRATIVE: CASE EVENT DATE: 2016
